FAERS Safety Report 25699711 (Version 2)
Quarter: 2025Q4

REPORT INFORMATION
  Report Type: Spontaneous
  Country: US (occurrence: US)
  Receive Date: 20250819
  Receipt Date: 20251205
  Transmission Date: 20260118
  Serious: Yes (Other)
  Sender: BAYER HEALTHCARE PHARMACEUTICALS INC.
  Company Number: US-BAYER-2025A107750

PATIENT
  Age: 19 Year
  Sex: Male

DRUGS (3)
  1. KOVALTRY [Suspect]
     Active Substance: ANTIHEMOPHILIC FACTOR, HUMAN RECOMBINANT
     Dosage: KOVALTRY 1111/3342 UN: INFUSE~ 5895 UN IV
     Route: 042
  2. KOVALTRY [Suspect]
     Active Substance: ANTIHEMOPHILIC FACTOR, HUMAN RECOMBINANT
     Dosage: KOVALTRY 1111/3342, INFUSE 5895 UN IV
  3. KOVALTRY [Suspect]
     Active Substance: ANTIHEMOPHILIC FACTOR, HUMAN RECOMBINANT
     Dosage: 1 DOSE KOVALTRY INFUSED
     Route: 042
     Dates: start: 20251125, end: 20251125

REACTIONS (3)
  - Limb injury [Recovering/Resolving]
  - Back injury [Unknown]
  - Back pain [Unknown]

NARRATIVE: CASE EVENT DATE: 20250807
